FAERS Safety Report 10937914 (Version 2)
Quarter: 2015Q2

REPORT INFORMATION
  Report Type: Spontaneous
  Country: US (occurrence: US)
  Receive Date: 20150321
  Receipt Date: 20150525
  Transmission Date: 20150821
  Serious: No
  Sender: FDA-Public Use
  Company Number: US-JNJFOC-20130812852

PATIENT
  Age: 41 Year
  Sex: Male
  Weight: 122.93 kg

DRUGS (1)
  1. STELARA [Suspect]
     Active Substance: USTEKINUMAB
     Indication: PSORIASIS
     Dosage: FIRST DOSE
     Route: 058
     Dates: start: 201308

REACTIONS (4)
  - Headache [Recovering/Resolving]
  - Dizziness [Recovering/Resolving]
  - Influenza like illness [Recovering/Resolving]
  - Visual field defect [Recovering/Resolving]

NARRATIVE: CASE EVENT DATE: 20130821
